FAERS Safety Report 17322328 (Version 1)
Quarter: 2020Q1

REPORT INFORMATION
  Report Type: Spontaneous
  Country: US (occurrence: US)
  Receive Date: 20200107
  Receipt Date: 20200107
  Transmission Date: 20200409
  Serious: No
  Sender: FDA-Public Use
  Company Number: None

PATIENT
  Age: 69 Year
  Sex: Female
  Weight: 72.57 kg

DRUGS (21)
  1. DOXIPIN [Concomitant]
  2. PAXIL [Concomitant]
     Active Substance: PAROXETINE HYDROCHLORIDE
  3. AMLODIPINE [Concomitant]
     Active Substance: AMLODIPINE BESYLATE
  4. VITAMIN D3 [Concomitant]
     Active Substance: CHOLECALCIFEROL
  5. MAGNEZIUM CRITATE [Concomitant]
  6. MULTI VITAMIN W/IRON [Concomitant]
  7. ALPRAZOLAM 0.5MG [Suspect]
     Active Substance: ALPRAZOLAM
     Indication: PANIC ATTACK
     Dosage: ?          QUANTITY:112 DF DOSAGE FORM;OTHER FREQUENCY:1/4  TIMES DAILY;?
     Route: 048
     Dates: start: 20191217, end: 20191231
  8. NEURONTIN [Concomitant]
     Active Substance: GABAPENTIN
  9. AVORSTATIN [Concomitant]
  10. VITAMIN B COMPLEX [Concomitant]
     Active Substance: CYANOCOBALAMIN\DEXPANTHENOL\NIACINAMIDE\PYRIDOXINE HYDROCHLORIDE\RIBOFLAVIN 5^-PHOSPHATE SODIUM\THIAMINE HYDROCHLORIDE\VITAMIN B COMPLEX
  11. SOMA [Concomitant]
     Active Substance: CARISOPRODOL
  12. RAMIPRIL. [Concomitant]
     Active Substance: RAMIPRIL
  13. METHOTREXATE. [Concomitant]
     Active Substance: METHOTREXATE
  14. CITRUCAL [Concomitant]
  15. ALPRAZOLAM. [Concomitant]
     Active Substance: ALPRAZOLAM
  16. VITAMIN E [Concomitant]
     Active Substance: .ALPHA.-TOCOPHEROL
  17. ALPRAZOLAM 0.5MG [Suspect]
     Active Substance: ALPRAZOLAM
     Indication: ANXIETY
     Dosage: ?          QUANTITY:112 DF DOSAGE FORM;OTHER FREQUENCY:1/4  TIMES DAILY;?
     Route: 048
     Dates: start: 20191217, end: 20191231
  18. CLOPIDOGREL [Concomitant]
     Active Substance: CLOPIDOGREL BISULFATE
  19. FOLIC ACID. [Concomitant]
     Active Substance: FOLIC ACID
  20. VITAMIN C [Concomitant]
     Active Substance: ASCORBIC ACID
  21. LECITHIN [Concomitant]
     Active Substance: LECITHIN

REACTIONS (7)
  - Poor quality sleep [None]
  - Product quality issue [None]
  - Feeling jittery [None]
  - Nervousness [None]
  - Anxiety [None]
  - Irritability [None]
  - Feeling abnormal [None]
